FAERS Safety Report 15335133 (Version 1)
Quarter: 2018Q3

REPORT INFORMATION
  Report Type: Spontaneous
  Country: TW (occurrence: TW)
  Receive Date: 20180830
  Receipt Date: 20180830
  Transmission Date: 20181010
  Serious: Yes (Death, Hospitalization, Other)
  Sender: FDA-Public Use
  Company Number: TW-GILEAD-2018-0359804

PATIENT
  Age: 81 Year
  Sex: Male

DRUGS (1)
  1. HARVONI [Suspect]
     Active Substance: LEDIPASVIR\SOFOSBUVIR
     Indication: CHRONIC HEPATITIS C
     Dosage: 1 DF, QD
     Route: 048
     Dates: start: 20180518

REACTIONS (10)
  - Dyspnoea [Unknown]
  - Glomerular filtration rate decreased [Unknown]
  - Arthralgia [Unknown]
  - Dizziness [Unknown]
  - Contusion [Unknown]
  - Anaemia [Unknown]
  - Haemoglobin decreased [Unknown]
  - Chest discomfort [Unknown]
  - Dyspnoea exertional [Unknown]
  - Septic shock [Fatal]

NARRATIVE: CASE EVENT DATE: 201806
